FAERS Safety Report 6280648-2 (Version None)
Quarter: 2009Q3

REPORT INFORMATION
  Report Type: 
  Country: None (occurrence: None)
  Receive Date: 20090724
  Receipt Date: 20081031
  Transmission Date: 20100115
  Serious: Yes (Hospitalization)
  Sender: FDA-Public Use
  Company Number: A0755087A

PATIENT
  Age: 39 Year
  Sex: Male
  Weight: 111.4 kg

DRUGS (7)
  1. AVANDIA [Suspect]
     Dosage: 4MG PER DAY
     Route: 048
     Dates: start: 20020829, end: 20060201
  2. CRESTOR [Concomitant]
  3. ASPIRIN [Concomitant]
  4. GLUCOTROL [Concomitant]
  5. METFORMIN HCL [Concomitant]
  6. ZOLOFT [Concomitant]
  7. SETRILAN [Concomitant]
     Dates: start: 19971001

REACTIONS (1)
  - CARDIAC FAILURE CONGESTIVE [None]
